FAERS Safety Report 5284305-0 (Version None)
Quarter: 2007Q2

REPORT INFORMATION
  Report Type: 
  Country: None (occurrence: None)
  Receive Date: 20070403
  Receipt Date: 20070323
  Transmission Date: 20071010
  Serious: Yes (Hospitalization)
  Sender: FDA-Public Use
  Company Number: PHBS2007HK05313

PATIENT
  Age: 58 Year
  Sex: Male

DRUGS (1)
  1. DICLOFENAC SODIUM [Suspect]
     Indication: GOUT
     Route: 030
     Dates: start: 20040801

REACTIONS (11)
  - CONTUSION [None]
  - EMBOLIA CUTIS MEDICAMENTOSA [None]
  - INFLAMMATION [None]
  - INJECTION SITE PAIN [None]
  - NECROSIS [None]
  - PSEUDOMONAS INFECTION [None]
  - SCAR [None]
  - SKIN GRAFT [None]
  - SKIN ULCER [None]
  - TENDERNESS [None]
  - WOUND DEBRIDEMENT [None]
